FAERS Safety Report 7457002-0 (Version None)
Quarter: 2011Q2

REPORT INFORMATION
  Report Type: 
  Country: None (occurrence: None)
  Receive Date: 20110504
  Receipt Date: 20110419
  Transmission Date: 20111010
  Serious: Yes (Other)
  Sender: FDA-Public Use
  Company Number: US-JNJFOC-20110302679

PATIENT
  Sex: Male
  Weight: 148.33 kg

DRUGS (4)
  1. REMICADE [Suspect]
     Indication: COLITIS ULCERATIVE
     Dosage: 1400 MG
     Route: 042
  2. PREDNISOLONE [Suspect]
     Indication: COLITIS ULCERATIVE
  3. REMICADE [Suspect]
     Route: 042
  4. REMICADE [Suspect]
     Route: 042

REACTIONS (7)
  - WEIGHT INCREASED [None]
  - THERAPEUTIC RESPONSE DECREASED [None]
  - FOOD AVERSION [None]
  - WEIGHT DECREASED [None]
  - IRRITABILITY [None]
  - INSOMNIA [None]
  - COLITIS ULCERATIVE [None]
